FAERS Safety Report 6146845-1 (Version None)
Quarter: 2009Q2

REPORT INFORMATION
  Report Type: 
  Country: None (occurrence: None)
  Receive Date: 20090406
  Receipt Date: 20090406
  Transmission Date: 20091009
  Serious: Yes (Other)
  Sender: FDA-Public Use
  Company Number: None

PATIENT
  Age: 13 Year
  Sex: Male

DRUGS (1)
  1. LAMOTRIGINE [Suspect]
     Dosage: 1 BY MOUTH TWICE DAILY
     Dates: start: 20090320, end: 20090330

REACTIONS (2)
  - MYDRIASIS [None]
  - PRODUCT QUALITY ISSUE [None]
